FAERS Safety Report 25589139 (Version 4)
Quarter: 2025Q4

REPORT INFORMATION
  Report Type: Spontaneous
  Country: JP (occurrence: JP)
  Receive Date: 20250722
  Receipt Date: 20251114
  Transmission Date: 20260118
  Serious: Yes (Life-Threatening, Other)
  Sender: ROCHE
  Company Number: JP-CHUGAI-2025022275

PATIENT
  Age: 80 Year
  Sex: Female

DRUGS (3)
  1. LUNSUMIO [Suspect]
     Active Substance: MOSUNETUZUMAB-AXGB
     Indication: Follicular lymphoma
     Route: 042
     Dates: start: 20250624, end: 20250624
  2. LUNSUMIO [Suspect]
     Active Substance: MOSUNETUZUMAB-AXGB
     Route: 042
     Dates: start: 20250701, end: 20250701
  3. LUNSUMIO [Suspect]
     Active Substance: MOSUNETUZUMAB-AXGB
     Route: 042
     Dates: start: 20250708, end: 20250708

REACTIONS (6)
  - Cardiac failure [Recovering/Resolving]
  - Platelet count decreased [Recovering/Resolving]
  - Liver disorder [Recovered/Resolved]
  - Cytokine release syndrome [Recovered/Resolved]
  - Infusion related reaction [Recovered/Resolved]
  - Stress cardiomyopathy [Unknown]

NARRATIVE: CASE EVENT DATE: 20250624
